FAERS Safety Report 23238166 (Version 3)
Quarter: 2025Q1

REPORT INFORMATION
  Report Type: Report from Study
  Country: CA (occurrence: CA)
  Receive Date: 20231129
  Receipt Date: 20250106
  Transmission Date: 20250408
  Serious: Yes (Other)
  Sender: ROCHE
  Company Number: CA-002147023-PHHY2016CA162394

PATIENT
  Age: 58 Year
  Sex: Female
  Weight: 84.0 kg

DRUGS (53)
  1. XOLAIR [Suspect]
     Active Substance: OMALIZUMAB
     Indication: Chronic spontaneous urticaria
     Route: 058
     Dates: start: 20140901
  2. XOLAIR [Suspect]
     Active Substance: OMALIZUMAB
     Route: 058
     Dates: start: 201701
  3. XOLAIR [Suspect]
     Active Substance: OMALIZUMAB
     Route: 058
     Dates: start: 20170410
  4. XOLAIR [Suspect]
     Active Substance: OMALIZUMAB
     Route: 058
     Dates: start: 20180627
  5. XOLAIR [Suspect]
     Active Substance: OMALIZUMAB
     Route: 058
     Dates: start: 20180724
  6. XOLAIR [Suspect]
     Active Substance: OMALIZUMAB
     Route: 058
     Dates: start: 20180821
  7. XOLAIR [Suspect]
     Active Substance: OMALIZUMAB
     Route: 058
     Dates: start: 20181204
  8. XOLAIR [Suspect]
     Active Substance: OMALIZUMAB
     Route: 058
     Dates: start: 20190102
  9. XOLAIR [Suspect]
     Active Substance: OMALIZUMAB
     Route: 058
     Dates: start: 20190115
  10. XOLAIR [Suspect]
     Active Substance: OMALIZUMAB
     Route: 058
     Dates: start: 20190409
  11. XOLAIR [Suspect]
     Active Substance: OMALIZUMAB
     Route: 058
     Dates: start: 20190828
  12. XOLAIR [Suspect]
     Active Substance: OMALIZUMAB
     Route: 058
     Dates: start: 20191023
  13. XOLAIR [Suspect]
     Active Substance: OMALIZUMAB
     Route: 058
     Dates: start: 20191120
  14. XOLAIR [Suspect]
     Active Substance: OMALIZUMAB
     Route: 058
     Dates: start: 20191223
  15. XOLAIR [Suspect]
     Active Substance: OMALIZUMAB
     Route: 058
     Dates: start: 202006
  16. XOLAIR [Suspect]
     Active Substance: OMALIZUMAB
     Route: 058
     Dates: start: 20180404
  17. XOLAIR [Suspect]
     Active Substance: OMALIZUMAB
     Route: 058
     Dates: start: 20201209
  18. XOLAIR [Suspect]
     Active Substance: OMALIZUMAB
     Route: 058
     Dates: end: 20201209
  19. XOLAIR [Suspect]
     Active Substance: OMALIZUMAB
     Route: 058
  20. XOLAIR [Suspect]
     Active Substance: OMALIZUMAB
     Route: 058
     Dates: start: 20220127
  21. XOLAIR [Suspect]
     Active Substance: OMALIZUMAB
     Route: 058
     Dates: start: 20210728
  22. XOLAIR [Suspect]
     Active Substance: OMALIZUMAB
     Route: 058
     Dates: start: 20220519
  23. XOLAIR [Suspect]
     Active Substance: OMALIZUMAB
     Route: 065
     Dates: start: 20230531
  24. XOLAIR [Suspect]
     Active Substance: OMALIZUMAB
     Route: 065
     Dates: start: 20231025
  25. XOLAIR [Suspect]
     Active Substance: OMALIZUMAB
     Route: 058
     Dates: start: 20231228
  26. XOLAIR [Suspect]
     Active Substance: OMALIZUMAB
     Route: 058
  27. XOLAIR [Suspect]
     Active Substance: OMALIZUMAB
     Route: 058
  28. XOLAIR [Suspect]
     Active Substance: OMALIZUMAB
     Route: 058
  29. XOLAIR [Suspect]
     Active Substance: OMALIZUMAB
     Route: 058
  30. XOLAIR [Suspect]
     Active Substance: OMALIZUMAB
     Route: 058
  31. XOLAIR [Suspect]
     Active Substance: OMALIZUMAB
     Route: 058
  32. XOLAIR [Suspect]
     Active Substance: OMALIZUMAB
     Route: 058
  33. XOLAIR [Suspect]
     Active Substance: OMALIZUMAB
     Route: 058
  34. XOLAIR [Suspect]
     Active Substance: OMALIZUMAB
     Route: 058
  35. XOLAIR [Suspect]
     Active Substance: OMALIZUMAB
     Route: 058
  36. XOLAIR [Suspect]
     Active Substance: OMALIZUMAB
     Route: 058
  37. XOLAIR [Suspect]
     Active Substance: OMALIZUMAB
     Route: 058
  38. XOLAIR [Suspect]
     Active Substance: OMALIZUMAB
     Route: 058
  39. XOLAIR [Suspect]
     Active Substance: OMALIZUMAB
     Route: 058
  40. XOLAIR [Suspect]
     Active Substance: OMALIZUMAB
     Route: 058
  41. XOLAIR [Suspect]
     Active Substance: OMALIZUMAB
     Route: 058
  42. XOLAIR [Suspect]
     Active Substance: OMALIZUMAB
     Route: 058
  43. XOLAIR [Suspect]
     Active Substance: OMALIZUMAB
     Route: 058
  44. XOLAIR [Suspect]
     Active Substance: OMALIZUMAB
     Route: 058
  45. XOLAIR [Suspect]
     Active Substance: OMALIZUMAB
     Route: 058
  46. XOLAIR [Suspect]
     Active Substance: OMALIZUMAB
     Route: 058
  47. XOLAIR [Suspect]
     Active Substance: OMALIZUMAB
     Route: 058
  48. XOLAIR [Suspect]
     Active Substance: OMALIZUMAB
     Route: 058
  49. XOLAIR [Suspect]
     Active Substance: OMALIZUMAB
     Route: 058
  50. XOLAIR [Suspect]
     Active Substance: OMALIZUMAB
     Route: 058
  51. NAPROXEN [Suspect]
     Active Substance: NAPROXEN
     Indication: Product used for unknown indication
     Route: 065
  52. TYLENOL [Suspect]
     Active Substance: ACETAMINOPHEN
     Indication: Product used for unknown indication
     Route: 065
  53. HYDROXYZINE [Concomitant]
     Active Substance: HYDROXYZINE HYDROCHLORIDE
     Indication: Product used for unknown indication
     Dosage: 25 MG, BID
     Route: 065
     Dates: start: 20201130, end: 20201214

REACTIONS (33)
  - Breast cancer [Unknown]
  - Urticaria [Not Recovered/Not Resolved]
  - Paraesthesia [Unknown]
  - Skin plaque [Unknown]
  - Papule [Unknown]
  - Erythema [Unknown]
  - Abdominal pain [Unknown]
  - Abdominal pain lower [Unknown]
  - Stress [Unknown]
  - Skin lesion [Unknown]
  - Ear swelling [Unknown]
  - Quality of life decreased [Unknown]
  - Oropharyngeal pain [Unknown]
  - Body temperature abnormal [Unknown]
  - Blood pressure abnormal [Unknown]
  - Illness [Unknown]
  - Bone pain [Recovered/Resolved]
  - Joint stiffness [Recovered/Resolved]
  - Headache [Unknown]
  - Product container issue [Unknown]
  - Product availability issue [Unknown]
  - Incorrect dose administered [Unknown]
  - Inappropriate schedule of product administration [Unknown]
  - Therapeutic response decreased [Unknown]
  - Therapy partial responder [Unknown]
  - Wound [Unknown]
  - Brain neoplasm benign [Unknown]
  - Drug hypersensitivity [Unknown]
  - Product dose omission issue [Unknown]
  - Pruritus [Unknown]
  - Rubber sensitivity [Unknown]
  - Skin exfoliation [Unknown]
  - Skin sensitisation [Unknown]

NARRATIVE: CASE EVENT DATE: 20161101
